FAERS Safety Report 15823342 (Version 15)
Quarter: 2022Q1

REPORT INFORMATION
  Report Type: Spontaneous
  Country: US (occurrence: US)
  Receive Date: 20190114
  Receipt Date: 20220104
  Transmission Date: 20220423
  Serious: Yes (Life-Threatening, Hospitalization, Other)
  Sender: FDA-Public Use
  Company Number: US-PFIZER INC-2018528724

PATIENT
  Age: 74 Year
  Sex: Female
  Weight: 71.202 kg

DRUGS (10)
  1. IBRANCE [Suspect]
     Active Substance: PALBOCICLIB
     Indication: Breast cancer metastatic
     Dosage: 125 MG, CYCLIC (3 WEEKS ON 1WEEK OFF)
     Route: 048
     Dates: start: 201810
  2. ARIMIDEX [Concomitant]
     Active Substance: ANASTROZOLE
     Indication: Endocrine disorder
     Dosage: 1 MG, DAILY
     Route: 048
     Dates: start: 20141120
  3. ARIMIDEX [Concomitant]
     Active Substance: ANASTROZOLE
     Dosage: UNK
     Dates: start: 201304, end: 2018
  4. XGEVA [Concomitant]
     Active Substance: DENOSUMAB
     Indication: Breast cancer metastatic
     Dosage: 120 MG, MONTHLY
     Route: 058
     Dates: start: 201810, end: 2018
  5. XGEVA [Concomitant]
     Active Substance: DENOSUMAB
     Dosage: UNK (EVERY 28 DAY )
     Route: 058
     Dates: start: 20181205
  6. FASLODEX [Concomitant]
     Active Substance: FULVESTRANT
     Indication: Breast cancer metastatic
     Dosage: 500 MG, MONTHLY(1 INJECTION IN EACH BUTTOCK ONCE MONTHLY)
     Route: 030
     Dates: start: 201810, end: 2018
  7. FASLODEX [Concomitant]
     Active Substance: FULVESTRANT
     Dosage: UNK
     Dates: start: 20181107
  8. FASLODEX [Concomitant]
     Active Substance: FULVESTRANT
     Dosage: UNK
     Dates: start: 20181121
  9. CARVEDILOL [Concomitant]
     Active Substance: CARVEDILOL
     Indication: Hypertension
     Dosage: 12.5 MG, 1X/DAY
     Route: 048
  10. HYDROCHLOROTHIAZIDE\OLMESARTAN MEDOXOMIL [Concomitant]
     Active Substance: HYDROCHLOROTHIAZIDE\OLMESARTAN MEDOXOMIL
     Indication: Hypertension
     Dosage: 2 DF, 1X/DAY (20/6.25MG TABLET-2 TABLETS TAKEN BY MOUTH ONCE DAILY)
     Route: 048

REACTIONS (8)
  - Neutropenia [Recovered/Resolved]
  - Alopecia [Not Recovered/Not Resolved]
  - White blood cell count decreased [Recovered/Resolved]
  - Pain in extremity [Not Recovered/Not Resolved]
  - Visual acuity reduced [Recovered/Resolved]
  - Arthralgia [Not Recovered/Not Resolved]
  - Dehydration [Unknown]
  - Blood test abnormal [Unknown]

NARRATIVE: CASE EVENT DATE: 20181001
